FAERS Safety Report 6855518-9 (Version None)
Quarter: 2010Q3

REPORT INFORMATION
  Report Type: 
  Country: None (occurrence: None)
  Receive Date: 20100719
  Receipt Date: 20100707
  Transmission Date: 20110219
  Serious: No
  Sender: FDA-Public Use
  Company Number: US-JNJFOC-20100606158

PATIENT
  Sex: Female
  Weight: 68.49 kg

DRUGS (23)
  1. SANDOZ FENTANYL TRANSDERMAL SYSTEM [Suspect]
     Indication: SCIATICA
     Route: 062
  2. SANDOZ FENTANYL TRANSDERMAL SYSTEM [Suspect]
     Indication: BACK PAIN
     Route: 062
  3. NPH INSULIN [Concomitant]
     Indication: DIABETES MELLITUS
     Route: 058
  4. ACTOS [Concomitant]
     Indication: DIABETES MELLITUS
     Route: 048
  5. METFORMIN HCL [Concomitant]
     Indication: DIABETES MELLITUS
     Route: 048
  6. LOPID [Concomitant]
     Indication: PRODUCT USED FOR UNKNOWN INDICATION
     Route: 048
  7. THEOPHYLLINE [Concomitant]
     Indication: RESPIRATORY DISORDER
     Route: 048
  8. NEURONTIN [Concomitant]
     Indication: DIABETES MELLITUS
     Dosage: 300 MG TID
     Route: 048
  9. TRAZODONE HYDROCHLORIDE [Concomitant]
     Indication: SLEEP DISORDER
     Route: 048
  10. ASPIRIN [Concomitant]
     Indication: CARDIAC DISORDER
     Route: 048
  11. SINGULAIR [Concomitant]
     Indication: RESPIRATORY DISORDER
     Route: 048
  12. LISINOPRIL [Concomitant]
     Indication: PRODUCT USED FOR UNKNOWN INDICATION
     Route: 048
  13. NEXIUM [Concomitant]
     Indication: GASTRIC DISORDER
     Route: 048
  14. VYTORIN [Concomitant]
     Indication: PRODUCT USED FOR UNKNOWN INDICATION
     Route: 048
  15. CITALOPRAM HYDROBROMIDE [Concomitant]
     Indication: DEPRESSION
     Route: 048
  16. SANCTURA XR [Concomitant]
     Indication: BLADDER DISORDER
     Route: 048
  17. GLYCOLAX [Concomitant]
     Indication: CONSTIPATION
     Route: 065
  18. MIRAPEX [Concomitant]
     Indication: RESTLESS LEGS SYNDROME
     Route: 048
  19. LASIX [Concomitant]
     Indication: FLUID RETENTION
     Route: 048
  20. COMBIVENT [Concomitant]
     Indication: RESPIRATORY DISORDER
     Route: 055
  21. SPIRIVA [Concomitant]
     Indication: RESPIRATORY DISORDER
     Route: 048
  22. ALBUTEROL [Concomitant]
     Indication: CHRONIC OBSTRUCTIVE PULMONARY DISEASE
     Route: 048
  23. REGULAR INSULIN [Concomitant]
     Indication: DIABETES MELLITUS
     Route: 058

REACTIONS (2)
  - INAPPROPRIATE SCHEDULE OF DRUG ADMINISTRATION [None]
  - PRODUCT QUALITY ISSUE [None]
